FAERS Safety Report 12416443 (Version 3)
Quarter: 2018Q4

REPORT INFORMATION
  Report Type: Spontaneous
  Country: US (occurrence: US)
  Receive Date: 20160530
  Receipt Date: 20181022
  Transmission Date: 20190204
  Serious: Yes (Other)
  Sender: FDA-Public Use
  Company Number: US-PFIZER INC-2016280031

PATIENT
  Age: 18 Year
  Sex: Male

DRUGS (6)
  1. FENTANYL. [Concomitant]
     Active Substance: FENTANYL
     Indication: PSYCHOTIC DISORDER
     Dosage: 1900 MCG/H
  2. PROPOFOL. [Suspect]
     Active Substance: PROPOFOL
     Indication: PSYCHOTIC DISORDER
     Dosage: UNK
  3. CLOZAPINE. [Concomitant]
     Active Substance: CLOZAPINE
     Indication: PSYCHOTIC DISORDER
     Dosage: 25 MG, 2X/DAY
  4. LORAZEPAM. [Concomitant]
     Active Substance: LORAZEPAM
     Dosage: 26 MG, IN TOTAL
  5. LITHIUM CARBONATE. [Concomitant]
     Active Substance: LITHIUM CARBONATE
     Indication: PSYCHOTIC DISORDER
     Dosage: UNK
  6. PHENOBARBITAL. [Concomitant]
     Active Substance: PHENOBARBITAL
     Dosage: 97.2 MG, IN TOTAL

REACTIONS (2)
  - Toxicity to various agents [Unknown]
  - Hypertriglyceridaemia [Unknown]
